FAERS Safety Report 16010179 (Version 1)
Quarter: 2019Q1

REPORT INFORMATION
  Report Type: Report from Study
  Country: IT (occurrence: IT)
  Receive Date: 20190227
  Receipt Date: 20190227
  Transmission Date: 20190418
  Serious: Yes (Hospitalization, Other)
  Sender: FDA-Public Use
  Company Number: IT-ACCORD-109504

PATIENT
  Age: 73 Year
  Sex: Female

DRUGS (6)
  1. ACETYLSALICYLIC ACID [Interacting]
     Active Substance: ASPIRIN
     Indication: PROPHYLAXIS
     Route: 048
  2. LEXOTAN [Concomitant]
     Active Substance: BROMAZEPAM
  3. CRESTOR [Concomitant]
     Active Substance: ROSUVASTATIN CALCIUM
  4. COUMADIN [Interacting]
     Active Substance: WARFARIN SODIUM
     Indication: ATRIAL FIBRILLATION
     Route: 048
  5. SERTRALINE [Suspect]
     Active Substance: SERTRALINE HYDROCHLORIDE
     Indication: DEPRESSION
     Route: 048
  6. DEPAKIN [Concomitant]
     Active Substance: VALPROATE SODIUM

REACTIONS (2)
  - Drug interaction [Unknown]
  - Vaginal haemorrhage [Recovering/Resolving]

NARRATIVE: CASE EVENT DATE: 20180715
